FAERS Safety Report 11584304 (Version 2)
Quarter: 2015Q4

REPORT INFORMATION
  Report Type: Spontaneous
  Country: FR (occurrence: FR)
  Receive Date: 20151001
  Receipt Date: 20151112
  Transmission Date: 20160304
  Serious: Yes (Other)
  Sender: FDA-Public Use
  Company Number: FR-TEVA-596185ISR

PATIENT
  Age: 71 Year
  Sex: Female
  Weight: 60 kg

DRUGS (4)
  1. FLECAINIDE TEVA 50 MG [Suspect]
     Active Substance: FLECAINIDE
     Route: 048
     Dates: start: 20150921
  2. BISOPROLOL TEVA 1.25MG [Suspect]
     Active Substance: BISOPROLOL
     Indication: ATRIAL FIBRILLATION
     Dosage: STARTED APPROXIMATELY 4 WEEKS AGO, ONGOING
     Route: 048
     Dates: start: 20150819, end: 20150930
  3. ELIQUIS [Concomitant]
     Active Substance: APIXABAN
     Indication: ATRIAL FIBRILLATION
     Dosage: 10 MILLIGRAM DAILY;
     Route: 048
     Dates: start: 20150819
  4. FLECAINIDE TEVA 50 MG [Suspect]
     Active Substance: FLECAINIDE
     Indication: ATRIAL FIBRILLATION
     Route: 048
     Dates: start: 20150917, end: 20150925

REACTIONS (4)
  - Altered state of consciousness [Recovered/Resolved]
  - Contraindicated drug administered [Unknown]
  - Vertigo [Recovered/Resolved]
  - Malaise [Recovered/Resolved]

NARRATIVE: CASE EVENT DATE: 20150917
